FAERS Safety Report 5229281-1 (Version None)
Quarter: 2007Q1

REPORT INFORMATION
  Report Type: 
  Country: None (occurrence: None)
  Receive Date: 20061201
  Receipt Date: 20060807
  Transmission Date: 20070707
  Serious: No
  Sender: FDA-Public Use
  Company Number: US200608001854

PATIENT
  Age: 57 Year
  Sex: Female

DRUGS (2)
  1. CYMBALTA [Suspect]
     Indication: FIBROMYALGIA
     Dosage: 30 MG
  2. LIPITOR [Concomitant]

REACTIONS (3)
  - CHOKING [None]
  - MUSCULOSKELETAL CHEST PAIN [None]
  - SOMNOLENCE [None]
